FAERS Safety Report 19815911 (Version 2)
Quarter: 2021Q3

REPORT INFORMATION
  Report Type: Spontaneous
  Country: US (occurrence: US)
  Receive Date: 20210909
  Receipt Date: 20210916
  Transmission Date: 20211014
  Serious: Yes (Other)
  Sender: FDA-Public Use
  Company Number: US-TEVA-2021-US-1950031

PATIENT
  Age: 56 Year
  Sex: Female

DRUGS (7)
  1. TOFACITINIB [Suspect]
     Active Substance: TOFACITINIB
     Indication: VITILIGO
     Dosage: 10 MILLIGRAM DAILY;
     Route: 065
  2. VITAMIN C [Suspect]
     Active Substance: ASCORBIC ACID
     Indication: VITILIGO
     Route: 065
  3. VITAMIN E [Suspect]
     Active Substance: .ALPHA.-TOCOPHEROL
     Indication: VITILIGO
     Route: 065
  4. ALPHA LIPOIC ACID [Suspect]
     Active Substance: .ALPHA.-LIPOIC ACID
     Indication: VITILIGO
     Route: 065
  5. POLYPODIUM LEUCOTOMOS [DIETARY SUPPLEMENT\HERBALS] [Suspect]
     Active Substance: DIETARY SUPPLEMENT\HERBALS
     Indication: VITILIGO
     Route: 065
  6. PIMECROLIMUS. [Suspect]
     Active Substance: PIMECROLIMUS
     Indication: VITILIGO
     Route: 061
  7. LEVOTHYROXINE. [Concomitant]
     Active Substance: LEVOTHYROXINE
     Indication: AUTOIMMUNE THYROIDITIS
     Dosage: SUBSEQUENTLY, THE DOSES INCREASED DUE TO ELEVATED TPO AND TG
     Route: 065

REACTIONS (3)
  - Off label use [Unknown]
  - Gastrointestinal disorder [Unknown]
  - Drug ineffective [Unknown]
